FAERS Safety Report 4434234-7 (Version None)
Quarter: 2004Q3

REPORT INFORMATION
  Report Type: 
  Country: None (occurrence: None)
  Receive Date: 20040825
  Receipt Date: 20040810
  Transmission Date: 20050211
  Serious: Yes (Hospitalization)
  Sender: FDA-Public Use
  Company Number: CIP95000001

PATIENT
  Age: 30 Year
  Sex: Female

DRUGS (5)
  1. FURADANTIN [Suspect]
     Dosage: 400 MG, DAILY, PO
     Route: 048
     Dates: start: 19740405, end: 19740415
  2. AMPICILLIN [Concomitant]
  3. DILANTIN [Concomitant]
  4. TEGRETOL [Concomitant]
  5. MYSOLINE [Concomitant]

REACTIONS (28)
  - BLOOD CHLORIDE DECREASED [None]
  - BLOOD UREA ABNORMAL [None]
  - CHEST PAIN [None]
  - CHILLS [None]
  - COUGH [None]
  - CREATININE RENAL CLEARANCE DECREASED [None]
  - DEPRESSION [None]
  - DIFFICULTY IN WALKING [None]
  - DYSPNOEA [None]
  - DYSSTASIA [None]
  - GAIT DISTURBANCE [None]
  - HYPERSENSITIVITY [None]
  - INTERSTITIAL LUNG DISEASE [None]
  - LISTLESS [None]
  - LUNG DISORDER [None]
  - LUNG INFILTRATION [None]
  - MALAISE [None]
  - NAUSEA [None]
  - PARESIS [None]
  - PULMONARY FIBROSIS [None]
  - PYREXIA [None]
  - RASH [None]
  - RED BLOOD CELLS URINE POSITIVE [None]
  - RESPIRATORY FAILURE [None]
  - URINE ANALYSIS ABNORMAL [None]
  - VOMITING [None]
  - WHITE BLOOD CELL COUNT INCREASED [None]
  - WHITE BLOOD CELLS URINE [None]
